FAERS Safety Report 13782347 (Version 1)
Quarter: 2017Q3

REPORT INFORMATION
  Report Type: Spontaneous
  Country: US (occurrence: US)
  Receive Date: 20170724
  Receipt Date: 20170724
  Transmission Date: 20171127
  Serious: No
  Sender: FDA-Public Use
  Company Number: US-PRINSTON PHARMACEUTICAL INC.-2016PRN00217

PATIENT
  Sex: Female
  Weight: 74.83 kg

DRUGS (5)
  1. NEVIRAPINE. [Suspect]
     Active Substance: NEVIRAPINE
     Indication: HIV INFECTION
     Dosage: UNK UNK, 2X/DAY
     Route: 048
     Dates: start: 2010, end: 20160806
  2. LAMIVUDINE (LUPIN) [Suspect]
     Active Substance: LAMIVUDINE
     Indication: HIV INFECTION
     Dosage: 1 TABLETS, 2X/DAY
     Dates: start: 2006, end: 20160806
  3. XANAX [Concomitant]
     Active Substance: ALPRAZOLAM
     Dosage: 0.5 MG, 1X/DAY
  4. HYDROCHLOROTHIAZIDE. [Concomitant]
     Active Substance: HYDROCHLOROTHIAZIDE
  5. LISINOPRIL. [Concomitant]
     Active Substance: LISINOPRIL

REACTIONS (4)
  - Hypoaesthesia oral [Recovered/Resolved]
  - Productive cough [Recovered/Resolved]
  - Hypoaesthesia [Recovered/Resolved]
  - Lower respiratory tract congestion [Recovered/Resolved]

NARRATIVE: CASE EVENT DATE: 2016
